FAERS Safety Report 21231590 (Version 2)
Quarter: 2022Q3

REPORT INFORMATION
  Report Type: Spontaneous
  Country: FI (occurrence: FI)
  Receive Date: 20220819
  Receipt Date: 20220830
  Transmission Date: 20221027
  Serious: Yes (Other)
  Sender: FDA-Public Use
  Company Number: FI-GLAXOSMITHKLINE-FI2022EME117716

PATIENT
  Age: 74 Year
  Sex: Female
  Weight: 61 kg

DRUGS (6)
  1. ELIQUIS [Suspect]
     Active Substance: APIXABAN
     Indication: Product used for unknown indication
     Dosage: UNK
     Route: 065
  2. JEMPERLI [Suspect]
     Active Substance: DOSTARLIMAB-GXLY
     Indication: Endometrial cancer recurrent
     Dosage: 500 MG, (EVERY 3 WEEKS)
     Route: 065
     Dates: start: 202204
  3. JEMPERLI [Suspect]
     Active Substance: DOSTARLIMAB-GXLY
     Dosage: 1000 MG
     Route: 065
     Dates: start: 202208
  4. JEMPERLI [Suspect]
     Active Substance: DOSTARLIMAB-GXLY
     Dosage: 1000 MG (EVERY 6 WEEKS)
     Route: 065
     Dates: start: 20220628
  5. JEMPERLI [Suspect]
     Active Substance: DOSTARLIMAB-GXLY
     Route: 065
     Dates: start: 20220511
  6. PRIMPERAN [Concomitant]
     Active Substance: METOCLOPRAMIDE HYDROCHLORIDE
     Indication: Nausea
     Dosage: 10 MG (OCCASIONALLY ON AN AS NEEDED BASIS)
     Route: 065

REACTIONS (6)
  - Thyroxine free decreased [Recovering/Resolving]
  - Hypothyroidism [Not Recovered/Not Resolved]
  - Blood thyroid stimulating hormone decreased [Recovered/Resolved]
  - Rash pruritic [Not Recovered/Not Resolved]
  - Asthenia [Not Recovered/Not Resolved]
  - Fatigue [Unknown]

NARRATIVE: CASE EVENT DATE: 20220610
